FAERS Safety Report 17753519 (Version 1)
Quarter: 2020Q2

REPORT INFORMATION
  Report Type: Spontaneous
  Country: US (occurrence: US)
  Receive Date: 20200506
  Receipt Date: 20200506
  Transmission Date: 20200714
  Serious: No
  Sender: FDA-Public Use
  Company Number: US-ROCHE-2547946

PATIENT
  Sex: Female

DRUGS (29)
  1. FAMOTIDINE. [Concomitant]
     Active Substance: FAMOTIDINE
  2. ATORVASTATIN [Concomitant]
     Active Substance: ATORVASTATIN
  3. CETIRIZINE HCL [Concomitant]
     Active Substance: CETIRIZINE HYDROCHLORIDE
  4. GABAPENTIN. [Concomitant]
     Active Substance: GABAPENTIN
  5. PREDNISONE. [Concomitant]
     Active Substance: PREDNISONE
  6. TRELEGY ELLIPTA [Concomitant]
     Active Substance: FLUTICASONE FUROATE\UMECLIDINIUM BROMIDE\VILANTEROL TRIFENATATE
  7. FLECAINIDE ACETATE. [Concomitant]
     Active Substance: FLECAINIDE ACETATE
  8. CALCIUM [Concomitant]
     Active Substance: CALCIUM
  9. AZELASTINE HCL [Concomitant]
     Active Substance: AZELASTINE HYDROCHLORIDE
  10. PROBIOTICA [Concomitant]
     Active Substance: PROBIOTICS NOS
  11. VENTOLIN HFA [Concomitant]
     Active Substance: ALBUTEROL SULFATE
  12. BUMETANIDE. [Concomitant]
     Active Substance: BUMETANIDE
  13. RANITIDINE HCL [Concomitant]
     Active Substance: RANITIDINE HYDROCHLORIDE
  14. VOLTAREN [DICLOFENAC] [Concomitant]
     Active Substance: DICLOFENAC SODIUM
  15. GLIMEPIRIDE. [Concomitant]
     Active Substance: GLIMEPIRIDE
  16. POTASSIUM CHLORIDE. [Concomitant]
     Active Substance: POTASSIUM CHLORIDE
  17. SULFASALAZINE. [Concomitant]
     Active Substance: SULFASALAZINE
  18. TYLENOL [Concomitant]
     Active Substance: ACETAMINOPHEN
  19. XOPENEX HFA [Concomitant]
     Active Substance: LEVALBUTEROL TARTRATE
  20. DILTIAZEM HCL [Concomitant]
     Active Substance: DILTIAZEM HYDROCHLORIDE
  21. ELIQUIS [Concomitant]
     Active Substance: APIXABAN
  22. MAGNESIUM [Concomitant]
     Active Substance: MAGNESIUM
  23. METFORMIN HYDROCHLORIDE. [Concomitant]
     Active Substance: METFORMIN HYDROCHLORIDE
     Route: 065
  24. LANTUS [Concomitant]
     Active Substance: INSULIN GLARGINE
  25. MECLIZINE HCL [Concomitant]
     Active Substance: MECLIZINE HYDROCHLORIDE
  26. ESBRIET [Suspect]
     Active Substance: PIRFENIDONE
     Indication: IDIOPATHIC PULMONARY FIBROSIS
     Dosage: 1 TAB 3 TIMES DAILY FOR 1 WEEK, THEN 2 TABS 3 TIMES DAILY FOR 1 WEEEK, THEN 3 TABS 3 TIMES DAILY WIT
     Route: 048
     Dates: start: 20200204
  27. BENAZEPRIL HCL [Concomitant]
     Active Substance: BENAZEPRIL HYDROCHLORIDE
  28. LEVOTHYROXINE SODIUM. [Concomitant]
     Active Substance: LEVOTHYROXINE SODIUM
  29. SOTALOL HCL [Concomitant]
     Active Substance: SOTALOL

REACTIONS (1)
  - Arthralgia [Unknown]
